FAERS Safety Report 5583866-1 (Version None)
Quarter: 2008Q1

REPORT INFORMATION
  Report Type: 
  Country: None (occurrence: None)
  Receive Date: 20080102
  Receipt Date: 20080102
  Transmission Date: 20080703
  Serious: Yes (Other)
  Sender: FDA-Public Use
  Company Number: None

PATIENT
  Sex: Male
  Weight: 11.98 kg

DRUGS (2)
  1. CEFUROXIME [Suspect]
     Indication: OSTEOMYELITIS
     Dosage: 600MG EVERY 8 HOURS IV BOLUS
     Route: 040
     Dates: start: 20071207, end: 20071222
  2. ACETAMINOPHEN W/ CODEINE [Concomitant]

REACTIONS (1)
  - WHITE BLOOD CELL COUNT DECREASED [None]
